FAERS Safety Report 9585928 (Version 1)
Quarter: 2013Q4

REPORT INFORMATION
  Report Type: Spontaneous
  Country: US (occurrence: None)
  Receive Date: 20131002
  Receipt Date: 20131002
  Transmission Date: 20140711
  Serious: No
  Sender: FDA-Public Use
  Company Number: None

PATIENT
  Age: 32 Year
  Sex: Male

DRUGS (6)
  1. OXCARBAZEPINE [Suspect]
     Dosage: 1 PILL
     Route: 048
     Dates: start: 20130926, end: 20130928
  2. CARBAMAZEPINE [Suspect]
     Dosage: 1 PILL
     Route: 048
     Dates: start: 20130925, end: 20130928
  3. OYSTER CALCIUM WITH VITAMIN D [Concomitant]
  4. FLUTICASONE NASAL SPRAY [Concomitant]
  5. RISPERIDONE [Concomitant]
  6. TRAZODONE [Concomitant]

REACTIONS (3)
  - Paranoia [None]
  - Anxiety [None]
  - Depression [None]
